FAERS Safety Report 14967929 (Version 2)
Quarter: 2018Q2

REPORT INFORMATION
  Report Type: Spontaneous
  Country: PR (occurrence: PR)
  Receive Date: 20180604
  Receipt Date: 20180611
  Transmission Date: 20180711
  Serious: No
  Sender: FDA-Public Use
  Company Number: PR-PFIZER INC-2018225764

PATIENT
  Age: 58 Year
  Sex: Female
  Weight: 59 kg

DRUGS (2)
  1. SUTENT [Suspect]
     Active Substance: SUNITINIB MALATE
     Dosage: 25 MG, DAILY
     Route: 048
     Dates: start: 20180531
  2. SUTENT [Suspect]
     Active Substance: SUNITINIB MALATE
     Indication: ENDOCRINE NEOPLASM MALIGNANT
     Dosage: 25 MG, CYCLIC (1 CAP DAILY X 28 DAYS/14 OFF)
     Route: 048

REACTIONS (3)
  - Jaundice [Unknown]
  - Muscle spasms [Unknown]
  - Ageusia [Unknown]
